FAERS Safety Report 9735617 (Version 1)
Quarter: 2013Q4

REPORT INFORMATION
  Report Type: Spontaneous
  Country: GB (occurrence: GB)
  Receive Date: 20131206
  Receipt Date: 20131206
  Transmission Date: 20140711
  Serious: Yes (Death, Hospitalization)
  Sender: FDA-Public Use
  Company Number: PHHY2013GB139464

PATIENT
  Age: 47 Year
  Sex: Male

DRUGS (2)
  1. ZOLEDRONATE [Suspect]
  2. DEXAMETHASONE [Suspect]

REACTIONS (13)
  - Hyperammonaemic encephalopathy [Fatal]
  - Confusional state [Fatal]
  - Hypertension [Fatal]
  - Convulsion [Fatal]
  - Brain oedema [Fatal]
  - Intracranial pressure increased [Fatal]
  - Nervous system disorder [Fatal]
  - Malignant hypertension [Fatal]
  - Unresponsive to stimuli [Fatal]
  - Blood viscosity increased [Fatal]
  - Ammonia increased [Fatal]
  - Cognitive disorder [Fatal]
  - Respiratory disorder [Unknown]
